FAERS Safety Report 5933417-4 (Version None)
Quarter: 2008Q4

REPORT INFORMATION
  Report Type: 
  Country: None (occurrence: None)
  Receive Date: 20081023
  Receipt Date: 20081013
  Transmission Date: 20090506
  Serious: Yes (Hospitalization, Other)
  Sender: FDA-Public Use
  Company Number: 2008AP001983

PATIENT
  Age: 81 Year
  Sex: Female

DRUGS (4)
  1. DILT-CD [Suspect]
     Indication: HYPERTENSION
     Dosage: 240 MG; QD; PO
     Route: 048
     Dates: start: 20080810, end: 20080801
  2. WARFARIN SODIUM [Concomitant]
  3. VITAMINS [Concomitant]
  4. DILTIAZEM HCL [Concomitant]

REACTIONS (8)
  - ATRIAL FIBRILLATION [None]
  - BLOOD PRESSURE FLUCTUATION [None]
  - BLOOD PRESSURE INCREASED [None]
  - DIZZINESS [None]
  - DRUG INEFFECTIVE [None]
  - HEART RATE INCREASED [None]
  - RASH [None]
  - TREMOR [None]
